FAERS Safety Report 6081865-7 (Version None)
Quarter: 2009Q1

REPORT INFORMATION
  Report Type: 
  Country: None (occurrence: None)
  Receive Date: 20090218
  Receipt Date: 20080414
  Transmission Date: 20090719
  Serious: No
  Sender: FDA-Public Use
  Company Number: US-BRISTOL-MYERS SQUIBB COMPANY-14150304

PATIENT
  Age: 76 Year
  Sex: Female
  Weight: 89 kg

DRUGS (4)
  1. GLUCOPHAGE [Suspect]
     Indication: DIABETES MELLITUS
  2. GLIPIZIDE [Concomitant]
  3. CARDIZEM CD [Concomitant]
  4. COZAAR [Concomitant]

REACTIONS (1)
  - DRUG INEFFECTIVE [None]
